FAERS Safety Report 24064443 (Version 1)
Quarter: 2024Q3

REPORT INFORMATION
  Report Type: Spontaneous
  Country: US (occurrence: US)
  Receive Date: 20240709
  Receipt Date: 20240709
  Transmission Date: 20241016
  Serious: Yes (Other)
  Sender: BAXTER
  Company Number: US-BAXTER-2024BAX020586

PATIENT
  Sex: Female

DRUGS (3)
  1. TISSEEL FROZEN [Suspect]
     Active Substance: FIBRINOGEN HUMAN\THROMBIN HUMAN
     Indication: Colon operation
     Dosage: UNK
     Route: 065
     Dates: start: 20170228, end: 20170228
  2. SODIUM CHLORIDE [Suspect]
     Active Substance: SODIUM CHLORIDE
     Indication: Medication dilution
     Dosage: UNK
     Route: 065
     Dates: start: 20170228, end: 20170228
  3. BETADINE [Suspect]
     Active Substance: POVIDONE-IODINE
     Dosage: UNK
     Route: 065
     Dates: start: 20170228, end: 20170228

REACTIONS (17)
  - Anaphylactic reaction [Not Recovered/Not Resolved]
  - Dizziness [Recovering/Resolving]
  - Rosacea [Not Recovered/Not Resolved]
  - Frequent bowel movements [Not Recovered/Not Resolved]
  - Hypotension [Recovering/Resolving]
  - Constipation [Recovered/Resolved]
  - Dyspepsia [Recovered/Resolved]
  - Cough [Not Recovered/Not Resolved]
  - Gastrointestinal pain [Not Recovered/Not Resolved]
  - Respiration abnormal [Not Recovered/Not Resolved]
  - Pruritus [Not Recovered/Not Resolved]
  - Throat tightness [Not Recovered/Not Resolved]
  - Seasonal allergy [Unknown]
  - Adverse reaction [Unknown]
  - Gluten sensitivity [Unknown]
  - Lactose intolerance [Unknown]
  - Sleep deficit [Unknown]
